FAERS Safety Report 14016357 (Version 1)
Quarter: 2017Q3

REPORT INFORMATION
  Report Type: Spontaneous
  Country: US (occurrence: US)
  Receive Date: 20170927
  Receipt Date: 20170927
  Transmission Date: 20171128
  Serious: No
  Sender: FDA-Public Use
  Company Number: US-SA-2017SA040056

PATIENT
  Age: 36 Year
  Sex: Female

DRUGS (2)
  1. CAMPATH [Suspect]
     Active Substance: ALEMTUZUMAB
     Indication: PROLYMPHOCYTIC LEUKAEMIA
     Route: 065
     Dates: start: 201702
  2. CAMPATH [Suspect]
     Active Substance: ALEMTUZUMAB
     Indication: PROLYMPHOCYTIC LEUKAEMIA
     Route: 065

REACTIONS (4)
  - Flushing [Unknown]
  - Off label use [Unknown]
  - Pain [Unknown]
  - Pain of skin [Unknown]

NARRATIVE: CASE EVENT DATE: 201702
